FAERS Safety Report 7179101-3 (Version None)
Quarter: 2010Q4

REPORT INFORMATION
  Report Type: 
  Country: None (occurrence: None)
  Receive Date: 20101221
  Receipt Date: 20101217
  Transmission Date: 20110411
  Serious: No
  Sender: FDA-Public Use
  Company Number: US-PFIZER INC-2010174866

PATIENT
  Sex: Female
  Weight: 60.771 kg

DRUGS (18)
  1. NICOTROL [Suspect]
     Indication: SMOKING CESSATION THERAPY
     Dosage: UNK
     Dates: start: 20101201
  2. SYMBICORT [Concomitant]
     Indication: RHEUMATOID ARTHRITIS
     Dosage: UNK
     Route: 055
  3. XOPENEX [Concomitant]
     Indication: ASTHMA
     Dosage: 45 UG, UNK
     Route: 055
  4. SPIRIVA [Concomitant]
     Indication: ASTHMA
     Dosage: 18 UG, DAILY
     Route: 055
  5. ASPIRIN [Concomitant]
     Dosage: 81 MG, DAILY
  6. FOLIC ACID [Concomitant]
     Dosage: 1 MG, DAILY
  7. METHOTREXATE [Concomitant]
     Dosage: 10 MG, WEEKLY
  8. RELAFEN [Concomitant]
     Dosage: 500 MG, 2X/DAY
  9. PILOCARPINE [Concomitant]
     Dosage: 5 MG, 3X/DAY
  10. POTASSIUM [Concomitant]
     Dosage: UNK
  11. CALCIUM [Concomitant]
     Dosage: UNK
  12. ASCORBIC ACID [Concomitant]
     Dosage: 1000 MG, DAILY
  13. FLAXSEED OIL [Concomitant]
     Dosage: UNK
  14. ACYCLOVIR SODIUM [Concomitant]
     Dosage: 400 MG, 2X/DAY
  15. LUNESTA [Concomitant]
     Dosage: 4.5 MG, DAILY
  16. LOVAZA [Concomitant]
     Dosage: UNK
  17. CENTRUM [Concomitant]
     Dosage: UNK
  18. COD-LIVER OIL [Concomitant]
     Dosage: UNK

REACTIONS (1)
  - DRUG RESISTANCE [None]
